FAERS Safety Report 9856086 (Version 1)
Quarter: 2014Q1

REPORT INFORMATION
  Report Type: Spontaneous
  Country: BR (occurrence: BR)
  Receive Date: 20140130
  Receipt Date: 20140130
  Transmission Date: 20141002
  Serious: Yes (Other)
  Sender: FDA-Public Use
  Company Number: BR-SA-2014SA009578

PATIENT
  Age: 14 Year
  Sex: Male
  Weight: 37 kg

DRUGS (4)
  1. APIDRA SOLOSTAR [Suspect]
     Indication: TYPE 1 DIABETES MELLITUS
     Dosage: DOSE: ACCORDING TO GLYCEMIC LEVEL
     Route: 065
  2. NPH INSULIN [Concomitant]
     Indication: TYPE 1 DIABETES MELLITUS
     Route: 058
  3. ALVESCO [Concomitant]
     Indication: ASTHMA
     Route: 048
     Dates: start: 2011
  4. SOLOSTAR [Concomitant]

REACTIONS (4)
  - Appendicitis [Unknown]
  - Abdominal pain upper [Unknown]
  - Blood glucose increased [Unknown]
  - Product physical issue [Unknown]
